FAERS Safety Report 6192247-1 (Version None)
Quarter: 2009Q2

REPORT INFORMATION
  Report Type: 
  Country: None (occurrence: None)
  Receive Date: 20090515
  Receipt Date: 20090511
  Transmission Date: 20091009
  Serious: Yes (Death, Other)
  Sender: FDA-Public Use
  Company Number: US-GENENTECH-281348

PATIENT
  Sex: Female
  Weight: 47.619 kg

DRUGS (19)
  1. RITUXAN [Suspect]
     Indication: B-CELL LYMPHOMA
     Dosage: UNK
     Route: 042
     Dates: start: 19980101
  2. RITUXAN [Suspect]
     Dosage: UNK
     Route: 042
     Dates: start: 20020101
  3. RITUXAN [Suspect]
     Dosage: UNK
     Route: 042
     Dates: start: 20040101
  4. RITUXAN [Suspect]
     Dosage: UNK
     Route: 042
     Dates: start: 20080101
  5. CYCLOPHOSPHAMIDE [Concomitant]
     Indication: B-CELL LYMPHOMA
     Dosage: UNK
     Route: 042
     Dates: start: 20080101
  6. VINCRISTINE [Concomitant]
     Indication: B-CELL LYMPHOMA
     Dosage: UNK
     Route: 042
     Dates: start: 20080101
  7. PREDNISONE [Concomitant]
     Indication: B-CELL LYMPHOMA
     Dosage: UNK
     Route: 042
     Dates: start: 20080101
  8. FLUDARABINE PHOSPHATE [Concomitant]
     Indication: B-CELL LYMPHOMA
     Dosage: UNK
     Route: 042
     Dates: start: 20020101
  9. FLUDARABINE PHOSPHATE [Concomitant]
     Dosage: UNK
     Route: 042
     Dates: start: 20040101
  10. MITOXANTRONE [Concomitant]
     Indication: B-CELL LYMPHOMA
     Dosage: UNK
     Dates: start: 20020101
  11. DECADRON [Concomitant]
     Indication: B-CELL LYMPHOMA
     Dosage: UNK
     Route: 042
     Dates: start: 20020101
  12. DECADRON [Concomitant]
     Dosage: UNK
     Route: 042
     Dates: start: 20040101
  13. ZEVALIN [Concomitant]
     Indication: B-CELL LYMPHOMA
     Dosage: UNK
     Dates: start: 20050101
  14. ZEVALIN [Concomitant]
     Dosage: UNK
     Route: 042
     Dates: start: 20070101
  15. ETOPOSIDE [Concomitant]
     Indication: B-CELL LYMPHOMA
     Dosage: UNK
     Route: 042
     Dates: start: 20080601
  16. METHYLPREDNISOLONE 4MG TAB [Concomitant]
     Indication: B-CELL LYMPHOMA
     Dosage: UNK
     Dates: start: 20080601
  17. CYTARABINE [Concomitant]
     Indication: B-CELL LYMPHOMA
     Dosage: UNK
     Dates: start: 20080601
  18. CISPLATIN [Concomitant]
     Indication: B-CELL LYMPHOMA
     Dosage: UNK
     Dates: start: 20080601
  19. UNSPECIFIED MEDICATION [Concomitant]
     Indication: B-CELL LYMPHOMA

REACTIONS (1)
  - PROGRESSIVE MULTIFOCAL LEUKOENCEPHALOPATHY [None]
